FAERS Safety Report 5730609-4 (Version None)
Quarter: 2008Q2

REPORT INFORMATION
  Report Type: 
  Country: None (occurrence: None)
  Receive Date: 20080507
  Receipt Date: 20080501
  Transmission Date: 20081010
  Serious: Yes (Life-Threatening, Hospitalization)
  Sender: FDA-Public Use
  Company Number: B0519137A

PATIENT
  Age: 91 Year
  Sex: Female

DRUGS (8)
  1. ARTIST [Suspect]
     Indication: CARDIAC FAILURE
     Route: 048
     Dates: start: 20080129, end: 20080328
  2. DIGOSIN [Suspect]
     Indication: DRUG USE FOR UNKNOWN INDICATION
     Dosage: .125MG PER DAY
     Route: 048
     Dates: start: 20080313, end: 20080328
  3. VERAPAMIL HYDROCHLORIDE [Suspect]
     Indication: DRUG USE FOR UNKNOWN INDICATION
     Dosage: 40MG THREE TIMES PER DAY
     Route: 048
     Dates: end: 20080328
  4. ENALAPRIL MALEATE [Concomitant]
     Route: 065
     Dates: start: 20080129, end: 20080328
  5. WARFARIN SODIUM [Concomitant]
     Route: 065
  6. DIGITALIS TAB [Concomitant]
     Route: 065
  7. VASOLAN [Concomitant]
     Route: 065
  8. ENALAPRIL MALEATE [Concomitant]
     Route: 065

REACTIONS (2)
  - CARDIAC FAILURE [None]
  - HEART RATE DECREASED [None]
